FAERS Safety Report 6967210-0 (Version None)
Quarter: 2010Q3

REPORT INFORMATION
  Report Type: 
  Country: None (occurrence: None)
  Receive Date: 20100907
  Receipt Date: 20100825
  Transmission Date: 20110219
  Serious: No
  Sender: FDA-Public Use
  Company Number: US-JNJFOC-20100703280

PATIENT
  Sex: Male
  Weight: 84.37 kg

DRUGS (9)
  1. FENTANYL CITRATE [Suspect]
     Indication: BACK PAIN
     Route: 062
  2. FENTANYL CITRATE [Suspect]
     Route: 062
  3. FENTANYL CITRATE [Suspect]
     Indication: PAIN
     Route: 062
  4. FENTANYL-100 [Suspect]
     Indication: PAIN
     Route: 062
  5. DURAGESIC-100 [Suspect]
     Indication: BACK PAIN
     Route: 062
  6. DURAGESIC-100 [Suspect]
     Dosage: 2 OF 100 UG/HR
     Route: 062
  7. DILANTIN [Concomitant]
     Indication: CONVULSION
     Route: 048
  8. CADUET [Concomitant]
     Indication: BLOOD CHOLESTEROL INCREASED
     Dosage: DOSE: 5/80MG
     Route: 048
  9. CADUET [Concomitant]
     Indication: HYPERTENSION
     Dosage: DOSE: 5/80MG
     Route: 048

REACTIONS (6)
  - BLOOD CHOLESTEROL INCREASED [None]
  - DRUG INEFFECTIVE [None]
  - DRUG PRESCRIBING ERROR [None]
  - HYPERTENSION [None]
  - MALAISE [None]
  - WITHDRAWAL SYNDROME [None]
